FAERS Safety Report 11112249 (Version 1)
Quarter: 2015Q2

REPORT INFORMATION
  Report Type: Spontaneous
  Country: US (occurrence: None)
  Receive Date: 20150513
  Receipt Date: 20150513
  Transmission Date: 20150821
  Serious: Yes (Hospitalization)
  Sender: FDA-Public Use
  Company Number: None

PATIENT
  Sex: Female

DRUGS (1)
  1. EPINEPHRINE. [Suspect]
     Active Substance: EPINEPHRINE
     Indication: BRONCHOSPASM
     Dates: start: 20150418

REACTIONS (3)
  - Expired product administered [None]
  - Bronchospasm [None]
  - Condition aggravated [None]

NARRATIVE: CASE EVENT DATE: 20150418
